FAERS Safety Report 7945883-3 (Version None)
Quarter: 2011Q4

REPORT INFORMATION
  Report Type: 
  Country: None (occurrence: None)
  Receive Date: 20111123
  Receipt Date: 20111107
  Transmission Date: 20120403
  Serious: Yes (Hospitalization)
  Sender: FDA-Public Use
  Company Number: WAES 1104FRA00147

PATIENT
  Age: 68 Year
  Sex: Male

DRUGS (9)
  1. DARUNAVIR ETHANOLATE [Concomitant]
  2. ASPIRIN LYSINE [Concomitant]
  3. TAB RALTEGRAVIR POTASSIUM [Suspect]
     Indication: HIV INFECTION
     Dosage: 400 MG/BID PO
     Route: 048
     Dates: start: 20110201
  4. INJ MUPLESTIM [Suspect]
     Dosage: 0.54 ML/DAILY SC ; 0.55 ML/DAILY SC ; 0.53 ML/DAILY SC
     Route: 058
     Dates: start: 20110405, end: 20110405
  5. INJ MUPLESTIM [Suspect]
     Dosage: 0.54 ML/DAILY SC ; 0.55 ML/DAILY SC ; 0.53 ML/DAILY SC
     Route: 058
     Dates: start: 20110413, end: 20110413
  6. INJ MUPLESTIM [Suspect]
     Dosage: 0.54 ML/DAILY SC ; 0.55 ML/DAILY SC ; 0.53 ML/DAILY SC
     Route: 058
     Dates: start: 20110419, end: 20110419
  7. ABACAVIR SULFATE/LAMIVUDINE [Concomitant]
  8. RITONAVIR [Concomitant]
  9. MARAVIROC [Suspect]
     Indication: HIV INFECTION
     Dosage: 300 MG/DAILY PO
     Route: 048
     Dates: start: 20110201

REACTIONS (10)
  - PAIN IN EXTREMITY [None]
  - NAUSEA [None]
  - INJECTION SITE ERYTHEMA [None]
  - PULMONARY EMBOLISM [None]
  - VASCULAR OCCLUSION [None]
  - PELVIC VENOUS THROMBOSIS [None]
  - ASTHENIA [None]
  - OEDEMA PERIPHERAL [None]
  - DEEP VEIN THROMBOSIS [None]
  - FIBRIN D DIMER INCREASED [None]
